FAERS Safety Report 5726498-4 (Version None)
Quarter: 2008Q2

REPORT INFORMATION
  Report Type: 
  Country: None (occurrence: None)
  Receive Date: 20080502
  Receipt Date: 20080421
  Transmission Date: 20081010
  Serious: Yes (Life-Threatening, Hospitalization)
  Sender: FDA-Public Use
  Company Number: DE-GENENTECH-260078

PATIENT
  Age: 58 Year
  Sex: Female

DRUGS (7)
  1. MABTHERA [Suspect]
     Indication: RHEUMATOID ARTHRITIS
     Dates: start: 20070501
  2. METHOTREXATE [Suspect]
     Indication: RHEUMATOID ARTHRITIS
     Dosage: 20 MG, 1/WEEK
     Dates: start: 20050101
  3. ADALIMUMAB [Suspect]
     Indication: RHEUMATOID ARTHRITIS
     Dosage: UNK, UNK
     Dates: start: 20040801, end: 20041201
  4. ADALIMUMAB [Suspect]
     Dates: start: 20050201, end: 20070401
  5. ETANERCEPT [Suspect]
     Indication: RHEUMATOID ARTHRITIS
     Dates: start: 20030201, end: 20030501
  6. ETANERCEPT [Suspect]
     Dates: start: 20030901, end: 20040201
  7. ETANERCEPT [Suspect]
     Dates: start: 20040501, end: 20040801

REACTIONS (1)
  - BREAST CANCER [None]
